FAERS Safety Report 23795969 (Version 6)
Quarter: 2025Q3

REPORT INFORMATION
  Report Type: Spontaneous
  Country: JP (occurrence: JP)
  Receive Date: 20240429
  Receipt Date: 20250924
  Transmission Date: 20251020
  Serious: Yes (Death, Hospitalization, Other)
  Sender: AMGEN
  Company Number: JP-KISSEI-TV20240321_P_1

PATIENT
  Age: 86 Year
  Sex: Female
  Weight: 35 kg

DRUGS (12)
  1. TAVNEOS [Suspect]
     Active Substance: AVACOPAN
     Indication: Microscopic polyangiitis
     Dosage: 30 MG, BID
     Route: 048
     Dates: start: 20230705, end: 20230906
  2. CELLCEPT [Suspect]
     Active Substance: MYCOPHENOLATE MOFETIL
     Indication: Microscopic polyangiitis
     Dosage: 500 MG, BID
     Route: 048
     Dates: start: 20230705, end: 20230929
  3. ATOVAQUONE [Suspect]
     Active Substance: ATOVAQUONE
     Indication: Antifungal prophylaxis
     Dosage: 750 MG ONCE IN 12 HOURS
     Route: 048
     Dates: start: 20230713, end: 20230920
  4. BONALON [Suspect]
     Active Substance: ALENDRONATE SODIUM
     Indication: Prophylaxis
     Dosage: 35 MG, QW
     Route: 048
     Dates: start: 20230803, end: 20230906
  5. PREDONINE [Concomitant]
     Active Substance: PREDNISOLONE
     Indication: Microscopic polyangiitis
     Dosage: 10 MG, QD
     Route: 048
     Dates: start: 20230705, end: 20230712
  6. PREDONINE [Concomitant]
     Active Substance: PREDNISOLONE
     Dosage: 7.5 MG, QD
     Dates: start: 20230713, end: 20230719
  7. PREDONINE [Concomitant]
     Active Substance: PREDNISOLONE
     Dosage: 10 MG, QD
     Dates: start: 20230720
  8. PREDONINE [Concomitant]
     Active Substance: PREDNISOLONE
     Dosage: 9 MG, QD
     Dates: start: 20230802
  9. PREDONINE [Concomitant]
     Active Substance: PREDNISOLONE
     Dosage: 8 MG, QD
  10. PREDONINE [Concomitant]
     Active Substance: PREDNISOLONE
     Dosage: 7 MG, QD
     Dates: end: 20240514
  11. ALFACALCIDOL [Concomitant]
     Active Substance: ALFACALCIDOL
     Indication: Prophylaxis
     Dosage: 0.5 MUG, QD
     Route: 048
     Dates: start: 20230712, end: 20230920
  12. MYCOPHENOLATE MOFETIL [Concomitant]
     Active Substance: MYCOPHENOLATE MOFETIL
     Dosage: 1000 MG, QD
     Route: 048

REACTIONS (4)
  - Cholestasis [Recovered/Resolved]
  - Aortic dissection [Fatal]
  - Asphyxia [Fatal]
  - Jaundice [Recovered/Resolved]

NARRATIVE: CASE EVENT DATE: 20230906
